FAERS Safety Report 6131968-3 (Version None)
Quarter: 2009Q1

REPORT INFORMATION
  Report Type: 
  Country: None (occurrence: None)
  Receive Date: 20090323
  Receipt Date: 20090309
  Transmission Date: 20090719
  Serious: Yes (Life-Threatening)
  Sender: FDA-Public Use
  Company Number: 2009030026

PATIENT
  Age: 85 Year
  Sex: Male
  Weight: 0.055 kg

DRUGS (11)
  1. TORSEMIDE [Suspect]
     Indication: ACCIDENTAL EXPOSURE
     Dosage: 10 MG (10 MG, 1 IN 1 D), ORAL
     Route: 048
     Dates: start: 20081221, end: 20081221
  2. RISPERIDONE [Suspect]
     Indication: ACCIDENTAL EXPOSURE
     Dosage: 2 MG (2 MG, 1 IN 1 D, ORAL
     Route: 048
     Dates: start: 20081221, end: 20081221
  3. DIGITOXIN TAB [Suspect]
     Indication: ACCIDENTAL EXPOSURE
     Dosage: 0.07 MG (0.07 MG, 1 IN 1 D), ORAL
     Route: 048
     Dates: start: 20081221, end: 20081221
  4. MELPERONE [Suspect]
     Indication: ACCIDENTAL EXPOSURE
     Dosage: 50 MG (50 MG, 1 IN 1 D), ORAL
     Route: 048
     Dates: start: 20081221, end: 20081221
  5. METOPROLOL [Suspect]
     Indication: HYPERTENSION
     Dosage: 25 MG (25 MG, 1 IN 1 D), ORAL
     Route: 048
  6. PENTALONG [Suspect]
     Indication: ACCIDENTAL EXPOSURE
     Dosage: 80 MG (80 MG, 1 IN 1 D), ORAL
     Route: 048
     Dates: start: 20081221, end: 20081221
  7. CLOPIDOGREL [Concomitant]
  8. KREON 2000 (PANCREATIN) [Concomitant]
  9. NOVALGIN (METAMIZOLE SODIUM MONOHYDRATE) [Concomitant]
  10. OMEPRAZOLE [Concomitant]
  11. RAMIPRIL [Concomitant]

REACTIONS (13)
  - ACCIDENTAL EXPOSURE [None]
  - ALANINE AMINOTRANSFERASE INCREASED [None]
  - ASPARTATE AMINOTRANSFERASE INCREASED [None]
  - BLOOD THYROID STIMULATING HORMONE DECREASED [None]
  - BLOOD UREA INCREASED [None]
  - DEHYDRATION [None]
  - DRUG INTERACTION [None]
  - HAEMATOCRIT DECREASED [None]
  - HAEMOGLOBIN DECREASED [None]
  - HYPOKALAEMIA [None]
  - SINUS BRADYCARDIA [None]
  - SOMNOLENCE [None]
  - VITAMIN B12 DECREASED [None]
